FAERS Safety Report 10360474 (Version 1)
Quarter: 2014Q3

REPORT INFORMATION
  Report Type: Spontaneous
  Country: US (occurrence: None)
  Receive Date: 20140801
  Receipt Date: 20140801
  Transmission Date: 20150326
  Serious: Yes (Hospitalization)
  Sender: FDA-Public Use
  Company Number: None

PATIENT
  Age: 8 Year
  Sex: Female
  Weight: 25.3 kg

DRUGS (5)
  1. MERCAPTOPURINE. [Suspect]
     Active Substance: MERCAPTOPURINE
     Dates: end: 20140629
  2. PIPERACILLIN/TAZOBACTAM [Concomitant]
     Active Substance: PIPERACILLIN SODIUM\TAZOBACTAM SODIUM
  3. FLUCONAZOLE. [Concomitant]
     Active Substance: FLUCONAZOLE
  4. METHOTREXATE [Suspect]
     Active Substance: METHOTREXATE
     Dosage: IT METHOTREXATE AND HIGH DOSE METHOTREXATE INCLUDE IN THE TOTAL DOSE?
     Dates: end: 20140627
  5. VINCRISTINE SULFATE. [Suspect]
     Active Substance: VINCRISTINE SULFATE
     Dosage: DOSE NOT CHANGED
     Dates: end: 20140627

REACTIONS (11)
  - Nausea [None]
  - Human rhinovirus test positive [None]
  - Enterovirus test positive [None]
  - White blood cell count decreased [None]
  - Generalised erythema [None]
  - Vomiting [None]
  - Drug hypersensitivity [None]
  - Rash [None]
  - Pyrexia [None]
  - Transfusion reaction [None]
  - Back pain [None]

NARRATIVE: CASE EVENT DATE: 20140629
